FAERS Safety Report 13877733 (Version 2)
Quarter: 2017Q4

REPORT INFORMATION
  Report Type: Report from Study
  Country: None (occurrence: US)
  Receive Date: 20170817
  Receipt Date: 20171001
  Transmission Date: 20180320
  Serious: Yes (Other)
  Sender: FDA-Public Use
  Company Number: US-ABBVIE-17K-163-2071901-00

PATIENT
  Age: 70 Year
  Sex: Male

DRUGS (3)
  1. HUMIRA [Suspect]
     Active Substance: ADALIMUMAB
     Dosage: 2 WEEKS LATER
     Route: 058
     Dates: start: 2016
  2. HUMIRA [Suspect]
     Active Substance: ADALIMUMAB
     Dosage: TWO WEEKS LATER
     Route: 058
     Dates: start: 201602, end: 201602
  3. HUMIRA [Suspect]
     Active Substance: ADALIMUMAB
     Indication: CROHN^S DISEASE
     Dosage: LOADING DOSE
     Route: 058
     Dates: start: 201602, end: 201602

REACTIONS (7)
  - Arthropod bite [Recovered/Resolved]
  - Rash papular [Recovered/Resolved]
  - Rash pruritic [Recovered/Resolved]
  - Rash pruritic [Not Recovered/Not Resolved]
  - Folliculitis [Recovered/Resolved]
  - Rash papular [Not Recovered/Not Resolved]
  - Skin cancer [Recovered/Resolved]

NARRATIVE: CASE EVENT DATE: 201705
